FAERS Safety Report 10231590 (Version 1)
Quarter: 2014Q2

REPORT INFORMATION
  Report Type: Spontaneous
  Country: GB (occurrence: GB)
  Receive Date: 20140611
  Receipt Date: 20140611
  Transmission Date: 20141212
  Serious: Yes (Other)
  Sender: FDA-Public Use
  Company Number: ALCN2014GB003315

PATIENT
  Age: 19 Year
  Sex: Female
  Weight: 53 kg

DRUGS (3)
  1. CIPROFLOXACIN [Suspect]
     Dosage: UNK
     Dates: start: 20140519
  2. CO-AMOXICLAV [Concomitant]
     Dosage: UNK
     Dates: start: 20140520
  3. TRIMETHOPRIM [Concomitant]
     Dosage: UNK
     Dates: start: 20140517

REACTIONS (1)
  - Rash [Unknown]
